FAERS Safety Report 8900419 (Version 3)
Quarter: 2013Q1

REPORT INFORMATION
  Report Type: Spontaneous
  Country: GB (occurrence: GB)
  Receive Date: 20121109
  Receipt Date: 20130314
  Transmission Date: 20140127
  Serious: Yes (Other)
  Sender: FDA-Public Use
  Company Number: PHFR2012GB004660

PATIENT
  Sex: Male

DRUGS (4)
  1. CLOZARIL [Suspect]
     Indication: SCHIZOPHRENIA
     Route: 048
     Dates: start: 20120817
  2. CLOZARIL [Suspect]
     Dosage: 100 MG, DAILY
     Route: 048
  3. CLOZARIL [Suspect]
     Dosage: 75 MG, DAILY
     Route: 048
  4. CLOZARIL [Suspect]
     Dosage: 112.5 MG, PER DAY
     Route: 048

REACTIONS (5)
  - Bundle branch block right [Recovered/Resolved]
  - Sinus tachycardia [Recovered/Resolved]
  - Heart rate increased [Not Recovered/Not Resolved]
  - Electrocardiogram QRS complex prolonged [Unknown]
  - Anxiety [Unknown]
